FAERS Safety Report 9190735 (Version 1)
Quarter: 2013Q1

REPORT INFORMATION
  Report Type: Spontaneous
  Country: JP (occurrence: None)
  Receive Date: 20130322
  Receipt Date: 20130322
  Transmission Date: 20140127
  Serious: Yes (Hospitalization)
  Sender: FDA-Public Use
  Company Number: TCI2012A06815

PATIENT
  Sex: 0

DRUGS (2)
  1. ROZEREM [Suspect]
     Route: 048
  2. LAXATIVES [Concomitant]

REACTIONS (2)
  - Overdose [None]
  - Depressed level of consciousness [None]
